FAERS Safety Report 5155020-9 (Version None)
Quarter: 2006Q4

REPORT INFORMATION
  Report Type: 
  Country: None (occurrence: None)
  Receive Date: 20061121
  Receipt Date: 20061031
  Transmission Date: 20070319
  Serious: Yes (Other)
  Sender: FDA-Public Use
  Company Number: PHEH2006US13571

PATIENT
  Age: 55 Year
  Sex: Female
  Weight: 81.179 kg

DRUGS (10)
  1. MS CONTIN [Concomitant]
  2. VICODIN [Concomitant]
  3. ZOMETA [Suspect]
     Indication: BREAST CANCER METASTATIC
     Dosage: 4MG QMO
     Route: 042
     Dates: start: 20050719, end: 20061024
  4. TAMOXIFEN CITRATE [Concomitant]
  5. ZOFRAN [Concomitant]
  6. LEVOTHROID [Concomitant]
  7. RADIATION THERAPY [Concomitant]
     Indication: PALLIATIVE CARE
  8. CARBOPLATIN [Concomitant]
     Dosage: 650 MG, QW3
     Dates: start: 20050928, end: 20060425
  9. TAXOL [Concomitant]
     Dosage: 330 MG, QW3
     Dates: start: 20050928, end: 20060425
  10. DECADRON                                /CAN/ [Concomitant]
     Dosage: 20 MG, QW3
     Dates: start: 20050928, end: 20060425

REACTIONS (3)
  - BONE DISORDER [None]
  - LOOSE TOOTH [None]
  - OSTEONECROSIS [None]
